FAERS Safety Report 12232930 (Version 3)
Quarter: 2016Q2

REPORT INFORMATION
  Report Type: Spontaneous
  Country: US (occurrence: US)
  Receive Date: 20160402
  Receipt Date: 20160531
  Transmission Date: 20160815
  Serious: Yes (Other)
  Sender: FDA-Public Use
  Company Number: US-ALLERGAN-1652411US

PATIENT
  Age: 18 Year
  Sex: Female
  Weight: 68.27 kg

DRUGS (5)
  1. RAPAFLO [Suspect]
     Active Substance: SILODOSIN
     Indication: NEUROGENIC BLADDER
     Dosage: 8 MG, QD
     Route: 048
     Dates: start: 2014, end: 20160401
  2. RAPAFLO [Suspect]
     Active Substance: SILODOSIN
     Indication: BLADDER SPASM
  3. VITAMIN C [Concomitant]
     Active Substance: ASCORBIC ACID
     Dosage: UNK
  4. ZYRTEC [Concomitant]
     Active Substance: CETIRIZINE HYDROCHLORIDE
     Indication: HYPERSENSITIVITY
  5. VITAMIN B12 [Concomitant]
     Active Substance: CYANOCOBALAMIN
     Dosage: UNK

REACTIONS (12)
  - Headache [Recovering/Resolving]
  - Migraine [Recovering/Resolving]
  - Nausea [Recovering/Resolving]
  - Fatigue [Recovering/Resolving]
  - Dizziness [Unknown]
  - Arrhythmia [Recovering/Resolving]
  - Swelling face [Not Recovered/Not Resolved]
  - Off label use [Unknown]
  - Muscular weakness [Recovering/Resolving]
  - Orthostatic hypotension [Recovering/Resolving]
  - Purpura [Not Recovered/Not Resolved]
  - Gastrointestinal disorder [Recovering/Resolving]

NARRATIVE: CASE EVENT DATE: 2014
